FAERS Safety Report 13610549 (Version 1)
Quarter: 2017Q2

REPORT INFORMATION
  Report Type: Spontaneous
  Country: US (occurrence: US)
  Receive Date: 20170602
  Receipt Date: 20170602
  Transmission Date: 20170830
  Serious: No
  Sender: FDA-Public Use
  Company Number: None

PATIENT
  Age: 57 Year
  Sex: Female

DRUGS (1)
  1. SILDENAFIL. [Suspect]
     Active Substance: SILDENAFIL
     Dosage: 20 MG TAB 3 TAB TID PO
     Route: 048

REACTIONS (2)
  - Fluid retention [None]
  - Oedema [None]

NARRATIVE: CASE EVENT DATE: 20170330
